FAERS Safety Report 9636242 (Version 1)
Quarter: 2013Q4

REPORT INFORMATION
  Report Type: Spontaneous
  Country: US (occurrence: US)
  Receive Date: 20131021
  Receipt Date: 20131021
  Transmission Date: 20140711
  Serious: Yes (Hospitalization, Other)
  Sender: FDA-Public Use
  Company Number: US-BRISTOL-MYERS SQUIBB COMPANY-19537760

PATIENT
  Age: 61 Year
  Sex: Female
  Weight: 99.32 kg

DRUGS (5)
  1. ABILIFY [Suspect]
  2. CLONAZEPAM [Concomitant]
  3. RESTORIL [Concomitant]
  4. LAMICTAL [Concomitant]
  5. TEGRETOL [Concomitant]

REACTIONS (2)
  - Mania [Unknown]
  - Foot deformity [Unknown]
